FAERS Safety Report 10671893 (Version 1)
Quarter: 2014Q4

REPORT INFORMATION
  Report Type: Report from Study
  Country: US (occurrence: US)
  Receive Date: 20141223
  Receipt Date: 20141223
  Transmission Date: 20150529
  Serious: Yes (Death)
  Sender: FDA-Public Use
  Company Number: US-ASTELLAS-2014US020824

PATIENT
  Sex: Male

DRUGS (5)
  1. ERLOTINIB [Suspect]
     Active Substance: ERLOTINIB
     Indication: GLIOBLASTOMA
  2. AVASTIN [Suspect]
     Active Substance: BEVACIZUMAB
     Indication: BRAIN NEOPLASM MALIGNANT
     Route: 065
     Dates: start: 20090217
  3. AVASTIN [Suspect]
     Active Substance: BEVACIZUMAB
     Indication: GLIOBLASTOMA
  4. ETOPOSIDE. [Concomitant]
     Active Substance: ETOPOSIDE
     Indication: PRODUCT USED FOR UNKNOWN INDICATION
     Dosage: UNK UNK, UNKNOWN FREQ.
     Route: 065
  5. ERLOTINIB [Suspect]
     Active Substance: ERLOTINIB
     Indication: BRAIN NEOPLASM MALIGNANT
     Dosage: UNK UNK, UNKNOWN FREQ.
     Route: 065

REACTIONS (2)
  - Death [Fatal]
  - Product use issue [Unknown]
